FAERS Safety Report 6967702-4 (Version None)
Quarter: 2010Q3

REPORT INFORMATION
  Report Type: 
  Country: None (occurrence: None)
  Receive Date: 20100907
  Receipt Date: 20100727
  Transmission Date: 20110219
  Serious: No
  Sender: FDA-Public Use
  Company Number: US-PFIZER INC-2010094858

PATIENT
  Sex: Female
  Weight: 49.433 kg

DRUGS (1)
  1. ZITHROMAX [Suspect]
     Indication: SINUSITIS
     Dosage: UNK, DAILY
     Route: 048
     Dates: start: 20100601, end: 20100703

REACTIONS (2)
  - TENDON RUPTURE [None]
  - TENDONITIS [None]
